FAERS Safety Report 5932296-9 (Version None)
Quarter: 2008Q4

REPORT INFORMATION
  Report Type: 
  Country: None (occurrence: None)
  Receive Date: 20081023
  Receipt Date: 20081015
  Transmission Date: 20090506
  Serious: Yes (Hospitalization)
  Sender: FDA-Public Use
  Company Number: DAV-AE-VOS-08-003

PATIENT
  Age: 47 Year
  Sex: Female

DRUGS (2)
  1. VOSPIRE ER [Suspect]
     Indication: ASTHMA
  2. CORRICOSTEROID THERAPY [Concomitant]

REACTIONS (1)
  - ACUTE MYOCARDIAL INFARCTION [None]
